FAERS Safety Report 8555353-X (Version None)
Quarter: 2012Q3

REPORT INFORMATION
  Report Type: 
  Country: None (occurrence: None)
  Receive Date: 20120731
  Receipt Date: 20110915
  Transmission Date: 20120928
  Serious: No
  Sender: FDA-Public Use
  Company Number: US-ASTRAZENECA-2011SE30940

PATIENT
  Age: 58 Year
  Sex: Male

DRUGS (8)
  1. SEROQUEL [Suspect]
     Indication: SLEEP DISORDER
     Route: 048
  2. SEROQUEL [Suspect]
     Route: 048
  3. XANAX [Concomitant]
  4. SEROQUEL [Suspect]
     Indication: FATIGUE
     Route: 048
  5. SEROQUEL [Suspect]
     Indication: INSOMNIA
     Route: 048
  6. SEROQUEL [Suspect]
     Route: 048
  7. SEROQUEL [Suspect]
     Route: 048
  8. VALIUM [Concomitant]

REACTIONS (7)
  - COORDINATION ABNORMAL [None]
  - DRUG DOSE OMISSION [None]
  - FATIGUE [None]
  - OFF LABEL USE [None]
  - INCORRECT DOSE ADMINISTERED [None]
  - INSOMNIA [None]
  - THERAPEUTIC RESPONSE UNEXPECTED [None]
